FAERS Safety Report 5411232-8 (Version None)
Quarter: 2007Q3

REPORT INFORMATION
  Report Type: 
  Country: None (occurrence: None)
  Receive Date: 20070810
  Receipt Date: 20070801
  Transmission Date: 20080115
  Serious: Yes (Hospitalization)
  Sender: FDA-Public Use
  Company Number: B0482560A

PATIENT
  Age: 51 Year
  Sex: Female

DRUGS (2)
  1. LAPATINIB [Suspect]
     Dosage: 1250MG PER DAY
     Route: 048
     Dates: start: 20070713, end: 20070729
  2. CAPECITABINE [Suspect]
     Dosage: 3150MG PER DAY
     Route: 048
     Dates: start: 20070713, end: 20070726

REACTIONS (1)
  - PERICARDIAL EFFUSION [None]
